FAERS Safety Report 8892614 (Version 1)
Quarter: 2012Q4

REPORT INFORMATION
  Report Type: Spontaneous
  Country: US (occurrence: None)
  Receive Date: 20121105
  Receipt Date: 20121105
  Transmission Date: 20130627
  Serious: Yes (Other)
  Sender: FDA-Public Use
  Company Number: None

PATIENT
  Age: 30 Year
  Sex: Female
  Weight: 56.7 kg

DRUGS (1)
  1. NITROFURANTOIN [Suspect]
     Indication: UTI
     Route: 048
     Dates: start: 20121024, end: 20121031

REACTIONS (3)
  - Urticaria [None]
  - Serum sickness [None]
  - Similar reaction on previous exposure to drug [None]
